FAERS Safety Report 17591310 (Version 1)
Quarter: 2020Q1

REPORT INFORMATION
  Report Type: Spontaneous
  Country: DE (occurrence: DE)
  Receive Date: 20200327
  Receipt Date: 20200327
  Transmission Date: 20200409
  Serious: Yes (Other)
  Sender: FDA-Public Use
  Company Number: DE-PFIZER INC-2020128718

PATIENT
  Age: 79 Year
  Sex: Female

DRUGS (2)
  1. LANTAREL [Suspect]
     Active Substance: METHOTREXATE SODIUM
     Indication: POLYARTHRITIS
  2. DECORTIN [Suspect]
     Active Substance: PREDNISONE
     Indication: POLYARTHRITIS

REACTIONS (7)
  - Laboratory test abnormal [Unknown]
  - Hypertension [Unknown]
  - Renal disorder [Unknown]
  - Fall [Unknown]
  - Pelvic fracture [Unknown]
  - Eye colour change [Recovering/Resolving]
  - Spinal fracture [Unknown]

NARRATIVE: CASE EVENT DATE: 2019
